FAERS Safety Report 15051552 (Version 1)
Quarter: 2018Q2

REPORT INFORMATION
  Report Type: Report from Study
  Country: US (occurrence: US)
  Receive Date: 20180622
  Receipt Date: 20180622
  Transmission Date: 20180711
  Serious: Yes (Other)
  Sender: FDA-Public Use
  Company Number: US-JNJFOC-20180625187

PATIENT
  Age: 61 Year
  Sex: Male

DRUGS (14)
  1. IMBRUVICA [Suspect]
     Active Substance: IBRUTINIB
     Indication: ACUTE LYMPHOCYTIC LEUKAEMIA
     Route: 048
     Dates: start: 20150616
  2. ASPIRIN. [Concomitant]
     Active Substance: ASPIRIN
  3. COLCHICINE. [Concomitant]
     Active Substance: COLCHICINE
  4. ZOLPIDEM [Concomitant]
     Active Substance: ZOLPIDEM\ZOLPIDEM TARTRATE
  5. BENADRYL [Concomitant]
     Active Substance: DIPHENHYDRAMINE HYDROCHLORIDE
  6. NIFEDIPINE. [Concomitant]
     Active Substance: NIFEDIPINE
  7. VALSARTAN. [Concomitant]
     Active Substance: VALSARTAN
  8. ZETIA [Concomitant]
     Active Substance: EZETIMIBE
  9. PREVACID [Concomitant]
     Active Substance: LANSOPRAZOLE
  10. ZYRTEC [Concomitant]
     Active Substance: CETIRIZINE HYDROCHLORIDE
  11. IMBRUVICA [Suspect]
     Active Substance: IBRUTINIB
     Indication: ACUTE LYMPHOCYTIC LEUKAEMIA
     Route: 048
     Dates: start: 20180502
  12. AMIODARONE [Concomitant]
     Active Substance: AMIODARONE
  13. METOPROLOL SUCCINATE. [Concomitant]
     Active Substance: METOPROLOL SUCCINATE
  14. POTASSIUM CHLORIDE. [Concomitant]
     Active Substance: POTASSIUM CHLORIDE

REACTIONS (4)
  - Blood disorder [Unknown]
  - Sepsis [Unknown]
  - Product use in unapproved indication [Unknown]
  - Off label use [Unknown]

NARRATIVE: CASE EVENT DATE: 20150616
